FAERS Safety Report 8790445 (Version 1)
Quarter: 2012Q4

REPORT INFORMATION
  Report Type: Spontaneous
  Country: US (occurrence: None)
  Receive Date: 20120911
  Receipt Date: 20120911
  Transmission Date: 20130627
  Serious: No
  Sender: FDA-Public Use
  Company Number: None

PATIENT
  Age: 58 Year
  Sex: Male
  Weight: 100.6 kg

DRUGS (1)
  1. FENOFIBRATE [Suspect]
     Indication: HYPERLIPIDEMIA
     Route: 048
     Dates: start: 20120725, end: 20120813

REACTIONS (4)
  - Nausea [None]
  - Vomiting [None]
  - Abdominal pain [None]
  - Abdominal distension [None]
